FAERS Safety Report 4314637-1 (Version None)
Quarter: 2004Q1

REPORT INFORMATION
  Report Type: 
  Country: None (occurrence: None)
  Receive Date: 20040308
  Receipt Date: 20040220
  Transmission Date: 20041129
  Serious: Yes (Hospitalization)
  Sender: FDA-Public Use
  Company Number: DSA_24021_2004

PATIENT
  Age: 28 Year
  Sex: Male

DRUGS (6)
  1. LORAZEPAM [Suspect]
     Dosage: 100 MG ONCE PO
     Route: 048
     Dates: start: 20040216, end: 20040216
  2. ATOSIL [Suspect]
     Dosage: 300 MG ONCE PO
     Route: 048
     Dates: start: 20040216, end: 20040216
  3. PROMETHAZINE [Suspect]
     Dosage: 160 MG ONCE PO
     Route: 048
     Dates: start: 20040216, end: 20040216
  4. TRAMADOLOR [Suspect]
     Dosage: 100 MG ONCE PO
     Route: 048
     Dates: start: 20040216, end: 20040216
  5. NEUROCIL [Suspect]
     Dosage: 100 MG ONCE PO
     Route: 048
     Dates: start: 20040216, end: 20040216
  6. ALCOHOL [Suspect]
     Dates: start: 20040216, end: 20040216

REACTIONS (4)
  - DIARRHOEA [None]
  - INTENTIONAL OVERDOSE [None]
  - SOPOR [None]
  - TACHYCARDIA [None]
